FAERS Safety Report 5674848-X (Version None)
Quarter: 2008Q1

REPORT INFORMATION
  Report Type: 
  Country: None (occurrence: None)
  Receive Date: 20080319
  Receipt Date: 20080319
  Transmission Date: 20080703
  Serious: Yes (Hospitalization)
  Sender: FDA-Public Use
  Company Number: None

PATIENT
  Age: 85 Year
  Sex: Female
  Weight: 81.6475 kg

DRUGS (1)
  1. LIPITOR [Suspect]
     Indication: CORONARY ARTERIAL STENT INSERTION
     Dates: start: 20071025, end: 20071115

REACTIONS (6)
  - ABDOMINAL PAIN [None]
  - ASTHENIA [None]
  - CARDIAC FAILURE CONGESTIVE [None]
  - DECREASED ACTIVITY [None]
  - MUSCLE SPASMS [None]
  - MUSCULAR WEAKNESS [None]
